FAERS Safety Report 11471867 (Version 1)
Quarter: 2015Q3

REPORT INFORMATION
  Report Type: Spontaneous
  Country: FR (occurrence: FR)
  Receive Date: 20150908
  Receipt Date: 20150908
  Transmission Date: 20151125
  Serious: Yes (Other)
  Sender: FDA-Public Use
  Company Number: FR-FERRINGPH-2015FE02841

PATIENT

DRUGS (10)
  1. XTANDI [Suspect]
     Active Substance: ENZALUTAMIDE
     Indication: PRODUCT USED FOR UNKNOWN INDICATION
     Dosage: 160 MG, DAILY
     Route: 048
     Dates: start: 20150120, end: 201505
  2. NAABAK                             /01266803/ [Concomitant]
     Route: 047
  3. MIANSERINE [Concomitant]
     Active Substance: MIANSERIN HYDROCHLORIDE
     Dosage: 30 MG, 1 TIME DAILY
     Route: 048
     Dates: end: 20150603
  4. MACROGOL 4000 [Concomitant]
     Active Substance: POLYETHYLENE GLYCOL 4000
     Route: 048
  5. VERATRAN [Concomitant]
     Active Substance: CLOTIAZEPAM
     Dosage: 1 DF, DAILY
     Route: 048
  6. XARELTO [Concomitant]
     Active Substance: RIVAROXABAN
     Dosage: UNK
     Route: 048
     Dates: start: 201412
  7. PANTOPRAZOLE [Concomitant]
     Active Substance: PANTOPRAZOLE SODIUM
     Dosage: 20 MG, 1 TIME DAILY
     Route: 048
  8. TANGANIL                           /00129601/ [Concomitant]
     Route: 048
  9. FIRMAGON [Suspect]
     Active Substance: DEGARELIX ACETATE
     Indication: PRODUCT USED FOR UNKNOWN INDICATION
     Dosage: UNK
     Route: 058
     Dates: start: 20150120
  10. EXFORGE [Concomitant]
     Active Substance: AMLODIPINE BESYLATE\VALSARTAN
     Dosage: 5MG/160MG

REACTIONS (5)
  - Neuralgia [None]
  - Paraesthesia [Recovering/Resolving]
  - Drug ineffective [None]
  - Insomnia [None]
  - Burning sensation [Recovering/Resolving]

NARRATIVE: CASE EVENT DATE: 201503
